FAERS Safety Report 20053383 (Version 1)
Quarter: 2021Q4

REPORT INFORMATION
  Report Type: Spontaneous
  Country: US (occurrence: None)
  Receive Date: 20211109
  Receipt Date: 20211109
  Transmission Date: 20220303
  Serious: No
  Sender: FDA-Public Use
  Company Number: None

PATIENT
  Age: 66 Year
  Sex: Female
  Weight: 48.15 kg

DRUGS (1)
  1. PROLIA [Suspect]
     Active Substance: DENOSUMAB
     Indication: Osteoporosis
     Dates: start: 20210722

REACTIONS (5)
  - Pain [None]
  - Thoracic vertebral fracture [None]
  - Lumbar vertebral fracture [None]
  - Lumbar vertebral fracture [None]
  - Lumbar vertebral fracture [None]

NARRATIVE: CASE EVENT DATE: 20211015
